FAERS Safety Report 10855416 (Version 1)
Quarter: 2015Q1

REPORT INFORMATION
  Report Type: Spontaneous
  Country: US (occurrence: None)
  Receive Date: 20150218
  Receipt Date: 20150218
  Transmission Date: 20150721
  Serious: No
  Sender: FDA-Public Use
  Company Number: None

PATIENT
  Age: 48 Year
  Sex: Female
  Weight: 81.65 kg

DRUGS (1)
  1. BOTOX [Suspect]
     Active Substance: ONABOTULINUMTOXINA
     Indication: MIGRAINE
     Dosage: 36 INJECTIONS, INJECTED INTO SPINAL AREA

REACTIONS (3)
  - Nail disorder [None]
  - Nail bed bleeding [None]
  - Onychoclasis [None]

NARRATIVE: CASE EVENT DATE: 20150212
